FAERS Safety Report 8060462-8 (Version None)
Quarter: 2012Q1

REPORT INFORMATION
  Report Type: 
  Country: None (occurrence: None)
  Receive Date: 20120120
  Receipt Date: 20120116
  Transmission Date: 20120608
  Serious: Yes (Hospitalization)
  Sender: FDA-Public Use
  Company Number: IT-GLAXOSMITHKLINE-B0776367A

PATIENT
  Sex: Male

DRUGS (5)
  1. RABEPRAZOLE SODIUM [Suspect]
     Indication: PROPHYLAXIS AGAINST GASTROINTESTINAL ULCER
     Route: 048
     Dates: start: 20110120, end: 20111115
  2. ARIXTRA [Suspect]
     Indication: DEEP VEIN THROMBOSIS
     Route: 058
     Dates: start: 20110120, end: 20111115
  3. MINOCYCLINE HCL [Suspect]
     Indication: FOLLICULITIS
     Dosage: 50MG PER DAY
     Route: 048
     Dates: start: 20111113, end: 20111115
  4. IRESSA [Suspect]
     Indication: ADENOCARCINOMA
     Route: 048
     Dates: start: 20110120, end: 20111115
  5. INDOMETHACIN [Concomitant]
     Indication: MUSCULOSKELETAL PAIN
     Route: 048

REACTIONS (4)
  - BLOOD BILIRUBIN INCREASED [None]
  - VOMITING [None]
  - AMYLASE INCREASED [None]
  - NAUSEA [None]
